FAERS Safety Report 16348571 (Version 2)
Quarter: 2019Q2

REPORT INFORMATION
  Report Type: Spontaneous
  Country: CZ (occurrence: CZ)
  Receive Date: 20190523
  Receipt Date: 20190607
  Transmission Date: 20190711
  Serious: Yes (Other)
  Sender: FDA-Public Use
  Company Number: CZ-UCBSA-2019015298

PATIENT
  Age: 52 Year
  Sex: Male

DRUGS (10)
  1. SALBUTAMOL [Concomitant]
     Active Substance: ALBUTEROL
     Dosage: UPTO 5X A DAY
     Route: 065
  2. ERDOSTEINE [Concomitant]
     Active Substance: ERDOSTEINE
     Indication: ASTHMA
  3. LEVOCETIRIZINE HYDROCHLORIDE [Suspect]
     Active Substance: LEVOCETIRIZINE HYDROCHLORIDE
     Indication: ASTHMA
     Dosage: UNKNOWN DOSE
  4. FORMOTEROL [Concomitant]
     Active Substance: FORMOTEROL
     Dosage: 12 MICROGRAM, 2X/DAY (BID)
     Route: 055
  5. SALBUTAMOL [Concomitant]
     Active Substance: ALBUTEROL
     Indication: PRODUCT USED FOR UNKNOWN INDICATION
     Dosage: 3X A DAY
  6. CICLESONIDE [Concomitant]
     Active Substance: CICLESONIDE
     Dosage: 160 MICROGRAM, 2X/DAY (BID)
     Route: 055
  7. CICLESONIDE [Concomitant]
     Active Substance: CICLESONIDE
     Indication: ASTHMA
     Dosage: 160 MICROGRAM, 2X/DAY (BID) (1-0-1)
     Route: 055
  8. FORMOTEROL [Concomitant]
     Active Substance: FORMOTEROL
     Indication: ASTHMA
     Dosage: 12 MICRO GRAMS, BID (TWO TIMES TWICE DAILY) (1-0-1)
     Route: 055
  9. LEVOCETIRIZINE HYDROCHLORIDE [Suspect]
     Active Substance: LEVOCETIRIZINE HYDROCHLORIDE
     Indication: OFF LABEL USE
  10. FLUTIFORM [Concomitant]
     Active Substance: FLUTICASONE PROPIONATE\FORMOTEROL FUMARATE
     Indication: PRODUCT USED FOR UNKNOWN INDICATION
     Dosage: 250/10 MICROGRAMS

REACTIONS (2)
  - Off label use [Unknown]
  - Dyspnoea exertional [Recovering/Resolving]
